FAERS Safety Report 4989119-4 (Version None)
Quarter: 2006Q2

REPORT INFORMATION
  Report Type: 
  Country: None (occurrence: None)
  Receive Date: 20060502
  Receipt Date: 20060421
  Transmission Date: 20061013
  Serious: Yes (Other)
  Sender: FDA-Public Use
  Company Number: US-GILEAD-2006-0009490

PATIENT
  Sex: Male

DRUGS (8)
  1. BLINDED EMTRICITABINE/TENOFOIVR DF [Suspect]
     Indication: HIV INFECTION
     Route: 048
     Dates: start: 20060303
  2. BLINDED ABACAVIR/LAMIVUDINE [Suspect]
     Indication: HIV INFECTION
     Dates: start: 20060303
  3. KALETRA [Suspect]
     Indication: HIV INFECTION
  4. FRUSEMIDE [Concomitant]
  5. AMLODIPINE [Concomitant]
  6. LISINOPRIL [Concomitant]
  7. CARVEDILOL [Concomitant]
  8. ISOSORBIDE [Concomitant]

REACTIONS (3)
  - CARDIAC FAILURE CONGESTIVE [None]
  - CONDITION AGGRAVATED [None]
  - RENAL FAILURE [None]
